FAERS Safety Report 5540622-8 (Version None)
Quarter: 2007Q4

REPORT INFORMATION
  Report Type: 
  Country: None (occurrence: None)
  Receive Date: 20071129
  Receipt Date: 20070510
  Transmission Date: 20080405
  Serious: Yes (Hospitalization, Other)
  Sender: FDA-Public Use
  Company Number: US200703002408

PATIENT
  Age: 31 Year
  Sex: Male
  Weight: 102.9 kg

DRUGS (18)
  1. ZYPREXA [Suspect]
     Indication: BIPOLAR DISORDER
     Dosage: 10 MG; 5 MG; 5 MG
     Dates: start: 19950101, end: 19980101
  2. ZYPREXA [Suspect]
     Indication: BIPOLAR DISORDER
     Dosage: 10 MG; 5 MG; 5 MG
     Dates: start: 19950101, end: 20040401
  3. ZYPREXA [Suspect]
     Indication: BIPOLAR DISORDER
     Dosage: 10 MG; 5 MG; 5 MG
     Dates: start: 20030801, end: 20040401
  4. CLOZAPINE [Concomitant]
  5. HALOPERIDOL [Concomitant]
  6. DIVALPROEX (VALPROATE SEMISODIUM) [Concomitant]
  7. LITHIUM CARBONATE [Concomitant]
  8. TOPAMAX [Concomitant]
  9. BUPROPION HCL [Concomitant]
  10. PROZAC [Concomitant]
  11. MIRTAZAPINE [Concomitant]
  12. PAROXETINE HCL [Concomitant]
  13. SERTRALINE [Concomitant]
  14. VENLAFAXINE HCL [Concomitant]
  15. PROPRANOLOL [Concomitant]
  16. PREDNISONE [Concomitant]
  17. INDINIVIR SULFATE [Concomitant]
  18. COMBIVIR [Concomitant]

REACTIONS (7)
  - BLOOD CHOLESTEROL INCREASED [None]
  - BLOOD TRIGLYCERIDES INCREASED [None]
  - CHEST DISCOMFORT [None]
  - DIABETES MELLITUS [None]
  - DIABETIC KETOACIDOSIS [None]
  - HYPERTENSION [None]
  - METABOLIC SYNDROME [None]
